FAERS Safety Report 8613924-6 (Version None)
Quarter: 2012Q3

REPORT INFORMATION
  Report Type: 
  Country: None (occurrence: None)
  Receive Date: 20120823
  Receipt Date: 20120820
  Transmission Date: 20120928
  Serious: Yes (Hospitalization, Other)
  Sender: FDA-Public Use
  Company Number: JP-SP-2012-06110

PATIENT
  Age: 64 Year
  Sex: Male

DRUGS (1)
  1. IMMUCYST [Suspect]
     Indication: BLADDER CANCER
     Dosage: 81 MG/DAY
     Route: 043
     Dates: start: 20120425, end: 20120501

REACTIONS (4)
  - TUBERCULOUS PLEURISY [None]
  - PYREXIA [None]
  - CHEST X-RAY ABNORMAL [None]
  - TUBERCULOSIS OF GENITOURINARY SYSTEM [None]
